FAERS Safety Report 4621256-6 (Version None)
Quarter: 2005Q1

REPORT INFORMATION
  Report Type: 
  Country: None (occurrence: None)
  Receive Date: 20050322
  Receipt Date: 20050322
  Transmission Date: 20050727
  Serious: No
  Sender: FDA-Public Use
  Company Number: None

PATIENT
  Sex: Female
  Weight: 88.4514 kg

DRUGS (1)
  1. ACCUPRIL [Suspect]
     Indication: HYPERTENSION
     Dosage: 20 MG ONE BID
     Dates: start: 20020902

REACTIONS (1)
  - NO ADVERSE DRUG EFFECT [None]
